FAERS Safety Report 20471267 (Version 1)
Quarter: 2022Q1

REPORT INFORMATION
  Report Type: Spontaneous
  Country: US (occurrence: None)
  Receive Date: 20220211
  Receipt Date: 20220211
  Transmission Date: 20220423
  Serious: Yes (Hospitalization)
  Sender: FDA-Public Use
  Company Number: None

PATIENT
  Age: 55 Year
  Sex: Female

DRUGS (9)
  1. CIMZIA [Suspect]
     Active Substance: CERTOLIZUMAB PEGOL
     Indication: Psoriatic arthropathy
     Dosage: OTHER QUANTITY : 20X200 MG/ML;?FREQUENCY : MONTHLY;?
     Route: 058
     Dates: start: 20200715
  2. ALBUTEROL AER HFA [Concomitant]
  3. CIMZIA PREFL KIT [Concomitant]
  4. CYMBALTA CAP [Concomitant]
  5. DIPHENHYDRAM CAP [Concomitant]
  6. HYDROCO/APAP TAB [Concomitant]
  7. PRILOSEC OTC TAB [Concomitant]
  8. RIZATRIPTAN TAB [Concomitant]
  9. ROSUVASTATIN [Concomitant]
     Active Substance: ROSUVASTATIN

REACTIONS (1)
  - Hospitalisation [None]

NARRATIVE: CASE EVENT DATE: 20220208
